FAERS Safety Report 24594932 (Version 1)
Quarter: 2024Q4

REPORT INFORMATION
  Report Type: Spontaneous
  Country: FR (occurrence: FR)
  Receive Date: 20241108
  Receipt Date: 20241108
  Transmission Date: 20250114
  Serious: Yes (Hospitalization)
  Sender: ELI LILLY AND COMPANY
  Company Number: FR-ELI_LILLY_AND_COMPANY-FR202410021116

PATIENT
  Age: 46 Year
  Sex: Female

DRUGS (3)
  1. ALIMTA [Suspect]
     Active Substance: PEMETREXED DISODIUM
     Indication: Bronchial carcinoma
     Dosage: 825 MG, CYCLICAL
     Route: 042
     Dates: start: 20240828, end: 20240919
  2. KEYTRUDA [Suspect]
     Active Substance: PEMBROLIZUMAB
     Indication: Bronchial carcinoma
     Dosage: 200 MG, CYCLICAL
     Route: 042
     Dates: start: 20240828, end: 20240919
  3. CARBOPLATIN [Suspect]
     Active Substance: CARBOPLATIN
     Indication: Non-small cell lung cancer stage IV
     Dosage: 750 MG, CYCLICAL
     Route: 042
     Dates: start: 20240828, end: 20240919

REACTIONS (1)
  - Immune-mediated myocarditis [Recovered/Resolved]

NARRATIVE: CASE EVENT DATE: 20240918
